FAERS Safety Report 8936540 (Version 1)
Quarter: 2012Q4

REPORT INFORMATION
  Report Type: 
  Country: CA (occurrence: CA)
  Receive Date: 20121130
  Receipt Date: 20121130
  Transmission Date: 20130627
  Serious: Yes (Hospitalization)
  Sender: FDA-Public Use
  Company Number: CA-JNJFOC-20121112070

PATIENT
  Sex: Male
  Weight: 88.45 kg

DRUGS (7)
  1. LISTERINE ANTISEPTIC MOUTHWASH [Suspect]
     Indication: BREATH ODOUR
     Dosage: pump twice into cap
     Route: 048
     Dates: end: 20121120
  2. LISTERINE ANTISEPTIC MOUTHWASH [Suspect]
     Indication: DENTAL DISORDER PROPHYLAXIS
     Dosage: pump twice into cap
     Route: 048
     Dates: end: 20121120
  3. LISTERINE FRESHBURST ANTISEPTIC [Suspect]
     Indication: BREATH ODOUR
     Dosage: pump twice into cap
     Route: 048
     Dates: end: 20121120
  4. LISTERINE FRESHBURST ANTISEPTIC [Suspect]
     Indication: DENTAL DISORDER PROPHYLAXIS
     Dosage: pump twice into cap
     Route: 048
     Dates: end: 20121120
  5. ADALAT [Concomitant]
     Indication: HYPERTENSION
     Dosage: pill
     Route: 065
     Dates: start: 2010
  6. ATENOLOL [Concomitant]
     Indication: HYPERTENSION
     Dosage: pill
     Route: 065
     Dates: start: 2010
  7. MULTIVITAMINS [Concomitant]
     Indication: GENERAL PHYSICAL CONDITION
     Dosage: pill
     Route: 065
     Dates: start: 2007

REACTIONS (3)
  - Oral neoplasm [Recovered/Resolved]
  - Inappropriate schedule of drug administration [Unknown]
  - Lymphoma [None]
